FAERS Safety Report 8536095-3 (Version None)
Quarter: 2012Q3

REPORT INFORMATION
  Report Type: 
  Country: None (occurrence: None)
  Receive Date: 20120725
  Receipt Date: 20120713
  Transmission Date: 20120928
  Serious: Yes (Death)
  Sender: FDA-Public Use
  Company Number: US-009507513-2012SP033077

PATIENT

DRUGS (3)
  1. KLONOPIN [Concomitant]
     Indication: NASAL CONGESTION
     Dosage: UNK
  2. CLARINEX [Suspect]
     Indication: NASAL CONGESTION
     Dosage: 2.5/ 120 MG, Q12H
     Route: 048
     Dates: start: 20120425
  3. GLUCOPHAGE [Concomitant]

REACTIONS (3)
  - NASAL CONGESTION [None]
  - DYSPNOEA [None]
  - DRUG INEFFECTIVE [None]
